FAERS Safety Report 11250817 (Version 1)
Quarter: 2015Q3

REPORT INFORMATION
  Report Type: Spontaneous
  Country: US (occurrence: US)
  Receive Date: 20150708
  Receipt Date: 20150708
  Transmission Date: 20151125
  Serious: No
  Sender: FDA-Public Use
  Company Number: US-ELI_LILLY_AND_COMPANY-US201105002666

PATIENT
  Age: 38 Year
  Sex: Female

DRUGS (1)
  1. PROZAC [Suspect]
     Active Substance: FLUOXETINE HYDROCHLORIDE
     Indication: DEPRESSION
     Dosage: UNK, UNKNOWN

REACTIONS (14)
  - Disturbance in attention [Unknown]
  - Irritability [Unknown]
  - Restlessness [Unknown]
  - Anger [Unknown]
  - Asthenia [Unknown]
  - Apathy [Unknown]
  - Feeling abnormal [Unknown]
  - Fatigue [Unknown]
  - Sexual dysfunction [Unknown]
  - Decreased activity [Unknown]
  - Insomnia [Unknown]
  - Depressed mood [Unknown]
  - Tearfulness [Unknown]
  - Feelings of worthlessness [Unknown]
